FAERS Safety Report 18791337 (Version 2)
Quarter: 2021Q2

REPORT INFORMATION
  Report Type: Spontaneous
  Country: GB (occurrence: GB)
  Receive Date: 20210127
  Receipt Date: 20210406
  Transmission Date: 20210717
  Serious: Yes (Death, Other)
  Sender: FDA-Public Use
  Company Number: GB-BEH-2021127332

PATIENT
  Age: 64 Year
  Sex: Male

DRUGS (1)
  1. PRIVIGEN [Suspect]
     Active Substance: HUMAN IMMUNOGLOBULIN G
     Indication: PYREXIA
     Dosage: 400 MILLILITER, TOT
     Route: 058
     Dates: start: 20210113, end: 20210113

REACTIONS (7)
  - Respiratory disorder [Unknown]
  - No adverse event [Unknown]
  - COVID-19 [Unknown]
  - Off label use [Unknown]
  - Body temperature increased [Unknown]
  - Malaise [Unknown]
  - Death [Fatal]

NARRATIVE: CASE EVENT DATE: 202101
